FAERS Safety Report 8459443-1 (Version None)
Quarter: 2012Q2

REPORT INFORMATION
  Report Type: 
  Country: None (occurrence: None)
  Receive Date: 20120622
  Receipt Date: 20120615
  Transmission Date: 20120825
  Serious: Yes (Other)
  Sender: FDA-Public Use
  Company Number: VE-PFIZER INC-2012123351

PATIENT
  Age: 65 Year
  Sex: Female

DRUGS (3)
  1. LYRICA [Suspect]
     Indication: HERNIA
     Dosage: 75 MG, 2X/DAY
     Route: 048
  2. LIPITOR [Concomitant]
     Indication: HYPERCHOLESTEROLAEMIA
     Dosage: 20 MG, 1X/DAY
     Route: 048
  3. ZOLOFT [Concomitant]
     Indication: NERVOUSNESS
     Dosage: 50 MG, 1X/DAY
     Route: 048

REACTIONS (1)
  - FOOT FRACTURE [None]
